FAERS Safety Report 15125098 (Version 1)
Quarter: 2018Q3

REPORT INFORMATION
  Report Type: Spontaneous
  Country: AU (occurrence: AU)
  Receive Date: 20180710
  Receipt Date: 20180710
  Transmission Date: 20181010
  Serious: Yes (Other)
  Sender: FDA-Public Use
  Company Number: AU-TEVA-2018-AU-923880

PATIENT

DRUGS (1)
  1. IMATINIB [Suspect]
     Active Substance: IMATINIB
     Route: 065

REACTIONS (12)
  - Alopecia [Unknown]
  - Fatigue [Unknown]
  - Philadelphia chromosome positive [Unknown]
  - Drug ineffective [Unknown]
  - Drug intolerance [Unknown]
  - Gastritis [Unknown]
  - Dizziness [Unknown]
  - Abdominal pain [Unknown]
  - Blood testosterone increased [Unknown]
  - Constipation [Unknown]
  - Nausea [Unknown]
  - Vomiting [Unknown]
